FAERS Safety Report 10091742 (Version 1)
Quarter: 2014Q2

REPORT INFORMATION
  Report Type: Spontaneous
  Country: US (occurrence: US)
  Receive Date: 20140421
  Receipt Date: 20140421
  Transmission Date: 20141212
  Serious: Yes (Death)
  Sender: FDA-Public Use
  Company Number: US-PURDUE-USA-2003-0009715

PATIENT
  Age: 31 Year
  Sex: Female

DRUGS (4)
  1. OXYIR CAPSULES 5 MG [Suspect]
     Indication: PAIN MANAGEMENT
     Dosage: 5 MG, UNK
     Route: 065
  2. DURAGESIC                          /00174601/ [Suspect]
     Indication: FIBROMYALGIA
     Dosage: UNK MG, UNK
  3. SERZONE [Concomitant]
     Indication: PRODUCT USED FOR UNKNOWN INDICATION
     Dosage: UNK MG, UNK
     Route: 065
  4. XANAX [Concomitant]
     Indication: PRODUCT USED FOR UNKNOWN INDICATION
     Dosage: UNK MG, UNK
     Route: 065

REACTIONS (1)
  - Overdose [Fatal]
